FAERS Safety Report 9402990 (Version 1)
Quarter: 2013Q3

REPORT INFORMATION
  Report Type: Spontaneous
  Country: US (occurrence: None)
  Receive Date: 20130715
  Receipt Date: 20130715
  Transmission Date: 20140515
  Serious: No
  Sender: FDA-Public Use
  Company Number: None

PATIENT
  Sex: 0

DRUGS (1)
  1. AMOXICILLIN [Suspect]
     Dosage: 20 NP9ILLS TWICE A DAY BY MOUTH
     Route: 048
     Dates: start: 20130708, end: 20130711

REACTIONS (1)
  - Ageusia [None]
